FAERS Safety Report 7365680-X (Version None)
Quarter: 2011Q1

REPORT INFORMATION
  Report Type: 
  Country: None (occurrence: None)
  Receive Date: 20110316
  Receipt Date: 20110316
  Transmission Date: 20110831
  Serious: No
  Sender: FDA-Public Use
  Company Number: None

PATIENT
  Age: 44 Year
  Sex: Female

DRUGS (3)
  1. PROMETHAZINE [Suspect]
  2. PROMETHAZINE [Suspect]
  3. PROMETHAZINE [Suspect]
     Indication: NAUSEA
     Dosage: 25MG ONCE IVP
     Route: 042
     Dates: start: 20110217

REACTIONS (5)
  - NAUSEA [None]
  - SWELLING [None]
  - PAIN [None]
  - ABDOMINAL PAIN [None]
  - ERYTHEMA [None]
